FAERS Safety Report 22003979 (Version 1)
Quarter: 2023Q1

REPORT INFORMATION
  Report Type: Report from Study
  Country: KR (occurrence: KR)
  Receive Date: 20230217
  Receipt Date: 20230217
  Transmission Date: 20230417
  Serious: Yes (Other)
  Sender: FDA-Public Use
  Company Number: KR-002147023-NVSC2023KR035068

PATIENT
  Age: 65 Year
  Sex: Female

DRUGS (12)
  1. BEOVU [Suspect]
     Active Substance: BROLUCIZUMAB-DBLL
     Indication: Neovascular age-related macular degeneration
     Dosage: 6 MG
     Route: 031
     Dates: start: 20220720, end: 20220720
  2. BEOVU [Suspect]
     Active Substance: BROLUCIZUMAB-DBLL
     Dosage: 6 MG
     Route: 031
     Dates: start: 20220914, end: 20220914
  3. BEOVU [Suspect]
     Active Substance: BROLUCIZUMAB-DBLL
     Dosage: 6 MG
     Route: 031
     Dates: start: 20221228, end: 20221228
  4. VIGAMOX [Concomitant]
     Active Substance: MOXIFLOXACIN HYDROCHLORIDE
     Indication: Evidence based treatment
     Dosage: 1 DRP, 4 (EYE DROP)
     Route: 047
     Dates: start: 20220720, end: 20220819
  5. VIGAMOX [Concomitant]
     Active Substance: MOXIFLOXACIN HYDROCHLORIDE
     Dosage: 1 DRP, 4 (EYE DROP)
     Route: 047
     Dates: start: 20220914, end: 20221013
  6. VIGAMOX [Concomitant]
     Active Substance: MOXIFLOXACIN HYDROCHLORIDE
     Dosage: 1 DRP, 4 (EYE DROP)
     Route: 047
     Dates: start: 20221228, end: 20230123
  7. PARACAINE [Concomitant]
     Active Substance: PROPARACAINE HYDROCHLORIDE
     Indication: Anaesthesia
     Dosage: UNK
     Route: 065
     Dates: start: 20220720, end: 20220720
  8. PARACAINE [Concomitant]
     Active Substance: PROPARACAINE HYDROCHLORIDE
     Dosage: UNK
     Route: 065
     Dates: start: 20220914, end: 20220914
  9. PARACAINE [Concomitant]
     Active Substance: PROPARACAINE HYDROCHLORIDE
     Dosage: UNK
     Route: 065
     Dates: start: 20221228, end: 20221228
  10. TROPHERINE [Concomitant]
     Indication: Mydriasis
     Dosage: UNK
     Route: 065
     Dates: start: 20220720, end: 20220720
  11. TROPHERINE [Concomitant]
     Dosage: UNK
     Route: 065
     Dates: start: 20220914, end: 20220914
  12. TROPHERINE [Concomitant]
     Dosage: UNK
     Route: 065
     Dates: start: 20221228, end: 20221228

REACTIONS (1)
  - Idiopathic orbital inflammation [Recovering/Resolving]

NARRATIVE: CASE EVENT DATE: 20230108
